FAERS Safety Report 4998414-4 (Version None)
Quarter: 2006Q2

REPORT INFORMATION
  Report Type: 
  Country: None (occurrence: None)
  Receive Date: 20060508
  Receipt Date: 20060501
  Transmission Date: 20061013
  Serious: Yes (Other)
  Sender: FDA-Public Use
  Company Number: ERP06000042

PATIENT
  Sex: Female

DRUGS (6)
  1. MACRODANTIN [Suspect]
     Indication: URINARY TRACT INFECTION
     Dosage: 50 MG, DAILY, ORAL
     Route: 048
  2. LIPITOR [Suspect]
  3. AVAPRO [Concomitant]
  4. RABEPRAZOLE SODIUM [Concomitant]
  5. HERBAL PREPARATION [Concomitant]
  6. VITAMINS [Concomitant]

REACTIONS (2)
  - ANOREXIA [None]
  - HEPATIC CIRRHOSIS [None]
